FAERS Safety Report 14723236 (Version 1)
Quarter: 2018Q2

REPORT INFORMATION
  Report Type: Spontaneous
  Country: TR (occurrence: TR)
  Receive Date: 20180405
  Receipt Date: 20180405
  Transmission Date: 20180711
  Serious: Yes (Hospitalization)
  Sender: FDA-Public Use
  Company Number: TR-BIOTEST PHARMACEUTICALS CORPORATION-TR-2018ADM000018

PATIENT
  Age: 54 Year
  Sex: Female

DRUGS (1)
  1. HUMAN IMMUNOGLOBULIN [Suspect]
     Active Substance: HUMAN IMMUNOGLOBULIN G
     Indication: GUILLAIN-BARRE SYNDROME
     Dosage: 0.4 G/KG PER DAY FOR FIVE DAYS
     Route: 042

REACTIONS (1)
  - Cerebral disorder [Recovered/Resolved]
